FAERS Safety Report 4749867-8 (Version None)
Quarter: 2005Q3

REPORT INFORMATION
  Report Type: 
  Country: None (occurrence: None)
  Receive Date: 20050818
  Receipt Date: 20050805
  Transmission Date: 20060218
  Serious: Yes (Other)
  Sender: FDA-Public Use
  Company Number: KII-2005-0017937

PATIENT
  Age: 39 Year
  Sex: Male

DRUGS (5)
  1. OXYCODONE HYDROCODONE (SIMILAR TO NDA 20-553) (OXYCODONE HYDROCHLORIDE [Suspect]
     Indication: PAIN
     Dosage: SUBLINGUAL
     Route: 060
  2. FENTANYL [Suspect]
     Dosage: TRASDERMAL
     Route: 062
  3. MILK THISTLE [Suspect]
  4. S-ADENOSYL-L-METHIONINE (ADEMETIONINE) [Suspect]
  5. LOCAL ANESTHESIA [Suspect]

REACTIONS (4)
  - COMA [None]
  - CONFUSIONAL STATE [None]
  - DISORIENTATION [None]
  - POST PROCEDURAL COMPLICATION [None]
